FAERS Safety Report 12917324 (Version 1)
Quarter: 2016Q4

REPORT INFORMATION
  Report Type: Spontaneous
  Country: IT (occurrence: IT)
  Receive Date: 20161107
  Receipt Date: 20161107
  Transmission Date: 20170207
  Serious: Yes (Other)
  Sender: FDA-Public Use
  Company Number: IT-ELI_LILLY_AND_COMPANY-IT201610009921

PATIENT
  Age: 92 Year
  Sex: Female

DRUGS (1)
  1. FORSTEO [Suspect]
     Active Substance: TERIPARATIDE
     Indication: PRODUCT USED FOR UNKNOWN INDICATION
     Dosage: UNK UNK, UNKNOWN
     Route: 065
     Dates: start: 20161026

REACTIONS (8)
  - Blood pressure decreased [Unknown]
  - Headache [Unknown]
  - Chest pain [Unknown]
  - Bone pain [Unknown]
  - Pain in extremity [Unknown]
  - Asthenia [Unknown]
  - Heart rate abnormal [Unknown]
  - Pain [Unknown]

NARRATIVE: CASE EVENT DATE: 20161026
